FAERS Safety Report 4473136-7 (Version None)
Quarter: 2004Q4

REPORT INFORMATION
  Report Type: 
  Country: None (occurrence: None)
  Receive Date: 20041013
  Receipt Date: 20010828
  Transmission Date: 20050328
  Serious: Yes (Hospitalization)
  Sender: FDA-Public Use
  Company Number: PHRM2001FR01931

PATIENT
  Age: 68 Year
  Sex: Male

DRUGS (1)
  1. PARLODEL [Suspect]
     Dosage: 2.5 MG, BID
     Route: 048

REACTIONS (5)
  - ERYTHEMA [None]
  - LYMPHOMA [None]
  - PHOTOSENSITIVITY REACTION [None]
  - PURPURA [None]
  - RASH PAPULAR [None]
